FAERS Safety Report 15810056 (Version 1)
Quarter: 2019Q1

REPORT INFORMATION
  Report Type: Spontaneous
  Country: US (occurrence: US)
  Receive Date: 20190111
  Receipt Date: 20190111
  Transmission Date: 20190417
  Serious: Yes (Hospitalization)
  Sender: FDA-Public Use
  Company Number: US-ROCHE-2135056

PATIENT
  Age: 30 Year
  Sex: Male

DRUGS (1)
  1. RITUXAN [Suspect]
     Active Substance: RITUXIMAB
     Indication: RELAPSING MULTIPLE SCLEROSIS
     Dosage: /SEP/2017, LAST DOSE
     Route: 065

REACTIONS (4)
  - Intentional product use issue [Unknown]
  - Sepsis [Unknown]
  - Off label use [Unknown]
  - Urinary tract infection [Unknown]
